FAERS Safety Report 5686275-X (Version None)
Quarter: 2008Q1

REPORT INFORMATION
  Report Type: 
  Country: None (occurrence: None)
  Receive Date: 20080328
  Receipt Date: 20070904
  Transmission Date: 20080703
  Serious: Yes (Other)
  Sender: FDA-Public Use
  Company Number: US-BAYER-US-2007-026416

PATIENT
  Age: 41 Year
  Sex: Female
  Weight: 135 kg

DRUGS (2)
  1. MIRENA [Suspect]
     Indication: CONTRACEPTION
     Route: 015
     Dates: start: 20070504, end: 20070709
  2. ZOLOFT [Concomitant]
     Dosage: UNIT DOSE: 100 MG

REACTIONS (5)
  - ABDOMINAL PAIN [None]
  - ALOPECIA [None]
  - BACK PAIN [None]
  - DYSPAREUNIA [None]
  - MENOMETRORRHAGIA [None]
